FAERS Safety Report 19080073 (Version 1)
Quarter: 2021Q2

REPORT INFORMATION
  Report Type: Spontaneous
  Country: JP (occurrence: JP)
  Receive Date: 20210401
  Receipt Date: 20210401
  Transmission Date: 20210717
  Serious: Yes (Other)
  Sender: FDA-Public Use
  Company Number: JP-JNJFOC-20201028469

PATIENT
  Age: 78 Year
  Sex: Female

DRUGS (10)
  1. TRAMCET [Suspect]
     Active Substance: ACETAMINOPHEN\TRAMADOL
     Indication: PRODUCT USED FOR UNKNOWN INDICATION
     Dosage: DOSE UNKNOWN
     Route: 048
     Dates: start: 20121111
  2. LOXONIN [Concomitant]
     Active Substance: LOXOPROFEN SODIUM
     Dosage: DOSE UNKNOWN,P.R.N
     Route: 003
  3. MOHRUS [Concomitant]
     Active Substance: KETOPROFEN
     Dosage: DOSE UNKNOWN,P.R.N
     Route: 003
  4. MOHRUS TAPE:L [Concomitant]
     Dosage: DOSE UNKNOWN,P.R.N
     Route: 003
  5. ARTZ [Concomitant]
     Active Substance: HYALURONATE SODIUM
     Dosage: DOSE UNKNOWN
     Route: 014
  6. PURSENNID [SENNOSIDE A+B CALCIUM] [Concomitant]
     Active Substance: SENNOSIDES A AND B
     Dosage: DOSE UNKNOWN
     Route: 065
     Dates: start: 20120108, end: 20120218
  7. MOHRUS TAPE [Concomitant]
     Active Substance: KETOPROFEN
     Dosage: DOSE UNKNOWN,P.R.N
     Route: 003
  8. TAKEPRON [Concomitant]
     Active Substance: LANSOPRAZOLE
     Dosage: DOSE UNKNOWN
     Route: 048
     Dates: start: 20140305, end: 20140413
  9. VOLTAREN [DICLOFENAC] [Concomitant]
     Active Substance: DICLOFENAC SODIUM
     Dosage: DOSE UNKNOWN,P.R.N
     Route: 054
  10. PRIMPERAN [Concomitant]
     Active Substance: METOCLOPRAMIDE HYDROCHLORIDE
     Dosage: IN THE MORNING AND EVENING
     Route: 048
     Dates: start: 20121111, end: 20121217

REACTIONS (2)
  - Cataract [Unknown]
  - Glaucoma [Unknown]

NARRATIVE: CASE EVENT DATE: 201907
